FAERS Safety Report 17879318 (Version 3)
Quarter: 2023Q1

REPORT INFORMATION
  Report Type: Report from Study
  Country: CA (occurrence: CA)
  Receive Date: 20200610
  Receipt Date: 20230209
  Transmission Date: 20230417
  Serious: Yes (Other)
  Sender: FDA-Public Use
  Company Number: PHHY2017CA092217

PATIENT
  Age: 55 Year
  Sex: Male

DRUGS (11)
  1. SANDOSTATIN [Suspect]
     Active Substance: OCTREOTIDE ACETATE
     Indication: Acromegaly
     Dosage: UNK UNK, TID (TO CONTINUE FOR 2 WEEKS POST LAR)
     Route: 058
     Dates: start: 20170116
  2. SANDOSTATIN [Suspect]
     Active Substance: OCTREOTIDE ACETATE
  3. SANDOSTATIN [Suspect]
     Active Substance: OCTREOTIDE ACETATE
  4. SANDOSTATIN LAR DEPOT [Suspect]
     Active Substance: OCTREOTIDE ACETATE
     Indication: Acromegaly
     Dosage: 40 MG, Q4W (EVERY 4 WEEKS)
     Route: 030
     Dates: start: 20170306, end: 20180112
  5. SANDOSTATIN LAR DEPOT [Suspect]
     Active Substance: OCTREOTIDE ACETATE
     Dosage: 60 MG, Q4W (EVERY 4 WEEKS)
     Route: 030
     Dates: start: 20200211
  6. CABERGOLINE [Concomitant]
     Active Substance: CABERGOLINE
     Indication: Product used for unknown indication
     Dosage: 0.5 MG, Q3W (THREE TIMES A WEEK)
     Route: 065
  7. TESTOSTERONE [Concomitant]
     Active Substance: TESTOSTERONE
     Indication: Product used for unknown indication
     Dosage: 5 G, QD
     Route: 065
  8. LIPITOR [Concomitant]
     Active Substance: ATORVASTATIN CALCIUM
     Indication: Product used for unknown indication
     Dosage: 20 G, QD
     Route: 048
  9. SYNTHROID [Concomitant]
     Active Substance: LEVOTHYROXINE SODIUM
     Indication: Product used for unknown indication
     Dosage: 2 DF, QD
     Route: 048
  10. CORTEF [Concomitant]
     Active Substance: HYDROCORTISONE
     Indication: Product used for unknown indication
     Dosage: 1 DOSAGE FORM, BID
     Route: 048
  11. SOMAVERT [Concomitant]
     Active Substance: PEGVISOMANT
     Indication: Product used for unknown indication
     Dosage: UNK
     Route: 065

REACTIONS (5)
  - Papillary thyroid cancer [Not Recovered/Not Resolved]
  - Thyroid mass [Unknown]
  - Malaise [Unknown]
  - Diarrhoea [Unknown]
  - Heart rate decreased [Unknown]

NARRATIVE: CASE EVENT DATE: 20190123
